FAERS Safety Report 18593620 (Version 1)
Quarter: 2020Q4

REPORT INFORMATION
  Report Type: Spontaneous
  Country: FR (occurrence: FR)
  Receive Date: 20201209
  Receipt Date: 20201209
  Transmission Date: 20210114
  Serious: Yes (Life-Threatening, Other)
  Sender: FDA-Public Use
  Company Number: FR-BRISTOL-MYERS SQUIBB COMPANY-BMS-2020-104287

PATIENT
  Age: 69 Year
  Sex: Female
  Weight: 69.5 kg

DRUGS (1)
  1. OPDIVO [Suspect]
     Active Substance: NIVOLUMAB
     Indication: LUNG ADENOCARCINOMA
     Dosage: 1 DOSAGE FORM
     Route: 042
     Dates: start: 2017, end: 20200121

REACTIONS (2)
  - Non-Hodgkin^s lymphoma [Not Recovered/Not Resolved]
  - Lymphoma transformation [Not Recovered/Not Resolved]

NARRATIVE: CASE EVENT DATE: 20200410
